FAERS Safety Report 19942919 (Version 1)
Quarter: 2021Q4

REPORT INFORMATION
  Report Type: 
  Country: US (occurrence: US)
  Receive Date: 20211012
  Receipt Date: 20211012
  Transmission Date: 20220303
  Serious: No
  Sender: FDA-Public Use
  Company Number: US-C B FLEET CO INC-202102-US-000537

PATIENT
  Age: 53 Year
  Sex: Female

DRUGS (7)
  1. MONISTAT 7 7-DAY DISPOSABLE APPLICATORS [Suspect]
     Active Substance: MICONAZOLE NITRATE
     Indication: Fungal infection
     Dosage: USED VAGINALLY X3D
     Route: 067
  2. ANTIFUNGAL CREAM [Concomitant]
     Active Substance: MICONAZOLE NITRATE
  3. antifungal pill [Concomitant]
  4. VASELINE PURE [Concomitant]
     Active Substance: PETROLATUM
  5. COCONUT OIL [Concomitant]
     Active Substance: COCONUT OIL
  6. OLIVE OIL [Concomitant]
     Active Substance: OLIVE OIL
  7. COVID VACCINE [Concomitant]

REACTIONS (9)
  - Condition aggravated [Recovered/Resolved]
  - Vulvovaginal swelling [Recovering/Resolving]
  - Anorectal swelling [Recovering/Resolving]
  - Skin discolouration [Recovering/Resolving]
  - Application site burn [Recovering/Resolving]
  - Application site haemorrhage [Recovered/Resolved]
  - Skin texture abnormal [Recovering/Resolving]
  - Dysuria [Unknown]
  - Application site pain [Recovering/Resolving]
